FAERS Safety Report 5169719-1 (Version None)
Quarter: 2006Q4

REPORT INFORMATION
  Report Type: 
  Country: None (occurrence: None)
  Receive Date: 20061212
  Receipt Date: 20060925
  Transmission Date: 20070319
  Serious: Yes (Other)
  Sender: FDA-Public Use
  Company Number: PHEH2006US12245

PATIENT
  Sex: Female
  Weight: 64.2 kg

DRUGS (8)
  1. DECADRON                                /CAN/ [Concomitant]
     Dosage: 10MG UNK
  2. ZOFRAN [Concomitant]
     Dosage: 32 MG UNK
  3. PROCRIT                            /00909301/ [Concomitant]
     Dosage: 60,000 UNK
  4. CARBOPLATIN [Concomitant]
     Dosage: 190MG UNK
     Dates: end: 20060724
  5. LIDOCAINE [Concomitant]
  6. ZOMETA [Suspect]
     Indication: BREAST CANCER METASTATIC
     Dosage: 4 MG MONTHLY
     Dates: start: 20030801, end: 20051101
  7. GEMZAR [Concomitant]
     Dosage: 1850MG UNK
  8. AVASTIN [Concomitant]
     Dosage: 400MG UNK

REACTIONS (4)
  - BACK PAIN [None]
  - INTERVERTEBRAL DISC DEGENERATION [None]
  - INTERVERTEBRAL DISC DISORDER [None]
  - OSTEONECROSIS [None]
